FAERS Safety Report 9739494 (Version 1)
Quarter: 2013Q4

REPORT INFORMATION
  Report Type: Spontaneous
  Country: US (occurrence: US)
  Receive Date: 20131209
  Receipt Date: 20131209
  Transmission Date: 20140711
  Serious: No
  Sender: FDA-Public Use
  Company Number: US-ABBVIE-12P-163-1018674-00

PATIENT
  Age: 55 Year
  Sex: Female

DRUGS (2)
  1. PROMETRIUM [Suspect]
     Indication: PRODUCT USED FOR UNKNOWN INDICATION
     Dosage: AT BEDTIME
     Dates: end: 20121129
  2. PROGESTERONE [Suspect]
     Indication: PRODUCT USED FOR UNKNOWN INDICATION
     Dates: start: 20121129

REACTIONS (2)
  - Postmenopausal haemorrhage [Recovered/Resolved]
  - Muscle spasms [Recovered/Resolved]
